FAERS Safety Report 11443143 (Version 1)
Quarter: 2015Q3

REPORT INFORMATION
  Report Type: Report from Study
  Country: US (occurrence: US)
  Receive Date: 20150901
  Receipt Date: 20150901
  Transmission Date: 20151125
  Serious: Yes (Death)
  Sender: FDA-Public Use
  Company Number: US-JNJFOC-20150900891

PATIENT
  Sex: Male

DRUGS (11)
  1. IMBRUVICA [Suspect]
     Active Substance: IBRUTINIB
     Indication: MANTLE CELL LYMPHOMA
     Route: 048
     Dates: start: 20131218
  2. FOSAMAX [Concomitant]
     Active Substance: ALENDRONATE SODIUM
  3. DEXAMETHASONE. [Concomitant]
     Active Substance: DEXAMETHASONE
  4. DILTIAZEM [Concomitant]
     Active Substance: DILTIAZEM
  5. ASPIRIN. [Concomitant]
     Active Substance: ASPIRIN
  6. OMEPRAZOLE. [Concomitant]
     Active Substance: OMEPRAZOLE
  7. ATORVASTATIN [Concomitant]
     Active Substance: ATORVASTATIN
  8. METOPROLOL TARTRATE. [Concomitant]
     Active Substance: METOPROLOL TARTRATE
  9. LEVETIRACETAM. [Concomitant]
     Active Substance: LEVETIRACETAM
  10. ACYCLOVIR. [Concomitant]
     Active Substance: ACYCLOVIR
  11. ZOLPIDEM [Concomitant]
     Active Substance: ZOLPIDEM\ZOLPIDEM TARTRATE

REACTIONS (2)
  - Myocardial infarction [Fatal]
  - Disease progression [Fatal]
